FAERS Safety Report 16265821 (Version 1)
Quarter: 2019Q2

REPORT INFORMATION
  Report Type: Spontaneous
  Country: CA (occurrence: CA)
  Receive Date: 20190502
  Receipt Date: 20190502
  Transmission Date: 20190711
  Serious: Yes (Hospitalization)
  Sender: FDA-Public Use
  Company Number: CA-BAYER-2019-084613

PATIENT
  Sex: Female

DRUGS (2)
  1. MIRENA [Suspect]
     Active Substance: LEVONORGESTREL
     Dosage: UNK
     Route: 015
     Dates: start: 20180825
  2. MIRENA [Suspect]
     Active Substance: LEVONORGESTREL

REACTIONS (11)
  - Peripheral swelling [None]
  - Abdominal pain lower [None]
  - Pain in extremity [None]
  - Vaginal discharge [None]
  - Menstruation irregular [None]
  - Pruritus generalised [None]
  - Lymphadenopathy [None]
  - Metrorrhagia [Not Recovered/Not Resolved]
  - Hemianaesthesia [None]
  - Pruritus [None]
  - Acne [None]

NARRATIVE: CASE EVENT DATE: 20180825
